FAERS Safety Report 26119686 (Version 1)
Quarter: 2025Q4

REPORT INFORMATION
  Report Type: Spontaneous
  Country: QA (occurrence: QA)
  Receive Date: 20251204
  Receipt Date: 20251204
  Transmission Date: 20260117
  Serious: Yes (Hospitalization, Other)
  Sender: STRIDES
  Company Number: QA-STRIDES ARCOLAB LIMITED-2025SP015064

PATIENT
  Age: 34 Year
  Sex: Female

DRUGS (9)
  1. DIAZEPAM [Suspect]
     Active Substance: DIAZEPAM
     Indication: Product used for unknown indication
     Dosage: UNK
     Route: 065
  2. PREGABALIN [Suspect]
     Active Substance: PREGABALIN
     Indication: Product used for unknown indication
     Dosage: UNK
     Route: 065
  3. HALOPERIDOL [Suspect]
     Active Substance: HALOPERIDOL
     Indication: Borderline personality disorder
     Dosage: UNK
     Route: 065
  4. PROCYCLIDINE [Suspect]
     Active Substance: PROCYCLIDINE
     Indication: Borderline personality disorder
     Dosage: UNK
     Route: 065
  5. OLANZAPINE [Suspect]
     Active Substance: OLANZAPINE
     Indication: Borderline personality disorder
     Dosage: UNK
     Route: 065
  6. KETAMINE [Suspect]
     Active Substance: KETAMINE
     Indication: Product used for unknown indication
     Dosage: UNK
     Route: 065
  7. LORAZEPAM [Concomitant]
     Active Substance: LORAZEPAM
     Indication: Borderline personality disorder
     Dosage: UNK
     Route: 065
  8. CHLORPROMAZINE [Concomitant]
     Active Substance: CHLORPROMAZINE
     Indication: Borderline personality disorder
     Dosage: UNK
     Route: 065
  9. DIPHENHYDRAMINE [Concomitant]
     Active Substance: DIPHENHYDRAMINE
     Indication: Borderline personality disorder
     Dosage: UNK
     Route: 065

REACTIONS (5)
  - Intentional self-injury [Recovered/Resolved]
  - Aggression [Recovered/Resolved]
  - Drug dependence [Recovered/Resolved]
  - Drug abuse [Unknown]
  - Off label use [Unknown]
